FAERS Safety Report 4846381-6 (Version None)
Quarter: 2005Q4

REPORT INFORMATION
  Report Type: 
  Country: None (occurrence: None)
  Receive Date: 20051128
  Receipt Date: 20051115
  Transmission Date: 20060501
  Serious: Yes (Life-Threatening, Hospitalization, Disabling)
  Sender: FDA-Public Use
  Company Number: IMP_1929_2005

PATIENT
  Age: 29 Year
  Sex: Female

DRUGS (2)
  1. SOTALOL HCL [Suspect]
     Dosage: 4.8 G ONCE
  2. VERAPAMIL [Suspect]
     Dosage: 3.6 MG ONCE

REACTIONS (24)
  - ANURIA [None]
  - BLOOD PRESSURE SYSTOLIC DECREASED [None]
  - BRADYCARDIA [None]
  - CARDIAC ARREST [None]
  - CARDIAC PACEMAKER INSERTION [None]
  - CARDIOVASCULAR DISORDER [None]
  - CIRCULATORY COLLAPSE [None]
  - COMPARTMENT SYNDROME [None]
  - GASTROINTESTINAL HAEMORRHAGE [None]
  - HAEMODIALYSIS [None]
  - HYPERKALAEMIA [None]
  - HYPONATRAEMIA [None]
  - LOSS OF CONSCIOUSNESS [None]
  - METABOLIC ACIDOSIS [None]
  - MULTIPLE DRUG OVERDOSE [None]
  - MYDRIASIS [None]
  - PARALYSIS [None]
  - POISONING [None]
  - PULSE PRESSURE DECREASED [None]
  - PUPIL FIXED [None]
  - RENAL FAILURE [None]
  - RESPIRATION ABNORMAL [None]
  - RHABDOMYOLYSIS [None]
  - UNRESPONSIVE TO PAIN STIMULI [None]
